FAERS Safety Report 4314910-7 (Version None)
Quarter: 2004Q1

REPORT INFORMATION
  Report Type: 
  Country: None (occurrence: None)
  Receive Date: 20040310
  Receipt Date: 20040310
  Transmission Date: 20041129
  Serious: Yes (Other)
  Sender: FDA-Public Use
  Company Number: None

PATIENT
  Sex: Female
  Weight: 24 kg

DRUGS (1)
  1. DEXFERRUM [Suspect]
     Indication: BLOOD IRON DECREASED
     Dosage: 1 Q0WK
     Dates: start: 20050303

REACTIONS (2)
  - ABDOMINAL PAIN UPPER [None]
  - CHEST PAIN [None]
